FAERS Safety Report 7167186-X (Version None)
Quarter: 2010Q4

REPORT INFORMATION
  Report Type: 
  Country: None (occurrence: None)
  Receive Date: 20101216
  Receipt Date: 20101203
  Transmission Date: 20110411
  Serious: Yes (Other)
  Sender: FDA-Public Use
  Company Number: PHHY2009IE42738

PATIENT
  Sex: Male

DRUGS (9)
  1. CLOZARIL [Suspect]
     Indication: SCHIZOPHRENIA
     Dosage: 300MG
     Dates: start: 19990224
  2. CLOZARIL [Suspect]
     Dosage: 425 MG, UNK
     Dates: start: 20091001
  3. CLOZARIL [Suspect]
     Dosage: 200 MG, UNK
     Dates: start: 20091116
  4. CLOZARIL [Suspect]
     Dosage: 50 MG, BID
     Route: 048
  5. PAROXETINE [Suspect]
     Dosage: 20MG
  6. LIPITOR [Concomitant]
     Indication: BLOOD CHOLESTEROL INCREASED
     Dosage: 20 MG, UNK
     Route: 048
     Dates: start: 20091001
  7. TRITACE [Concomitant]
     Indication: HYPERTENSION
     Dosage: 2.5 MG/DAY
     Route: 048
     Dates: start: 20091001
  8. GLUCOPHAGE [Concomitant]
     Indication: TYPE 2 DIABETES MELLITUS
     Dosage: 500 MG, UNK
     Route: 048
     Dates: start: 20091001
  9. PALIPERIDONE [Concomitant]
     Dosage: 6 MG/DAY
     Route: 048
     Dates: start: 20091006

REACTIONS (4)
  - CHRONIC OBSTRUCTIVE PULMONARY DISEASE [None]
  - ELECTROCARDIOGRAM QT PROLONGED [None]
  - PROSTATE CANCER [None]
  - TYPE 2 DIABETES MELLITUS [None]
